FAERS Safety Report 8759122 (Version 1)
Quarter: 2012Q4

REPORT INFORMATION
  Report Type: 
  Country: US (occurrence: US)
  Receive Date: 20120829
  Receipt Date: 20120829
  Transmission Date: 20130627
  Serious: Yes (Other)
  Sender: FDA-Public Use
  Company Number: PHHY2012US074063

PATIENT
  Age: 40 Year
  Sex: Female

DRUGS (1)
  1. GILENYA [Suspect]
     Indication: RELAPSING-REMITTING MULTIPLE SCLEROSIS
     Dosage: 0.5 mg, QOD
     Route: 048
     Dates: start: 20110301

REACTIONS (3)
  - Asthma [Recovering/Resolving]
  - Condition aggravated [Recovering/Resolving]
  - Inappropriate schedule of drug administration [Unknown]
